FAERS Safety Report 11175390 (Version 2)
Quarter: 2015Q3

REPORT INFORMATION
  Report Type: Spontaneous
  Country: US (occurrence: US)
  Receive Date: 20150609
  Receipt Date: 20150805
  Transmission Date: 20151125
  Serious: No
  Sender: FDA-Public Use
  Company Number: US-VERTEX PHARMACEUTICALS-2015-002398

PATIENT
  Age: 39 Year
  Sex: Female
  Weight: 63 kg

DRUGS (6)
  1. KALYDECO [Suspect]
     Active Substance: IVACAFTOR
     Indication: CYSTIC FIBROSIS
     Dosage: UNK, BID
     Route: 048
     Dates: start: 20150114
  2. AZITHROMYCIN [Concomitant]
     Active Substance: AZITHROMYCIN ANHYDROUS
     Indication: CYSTIC FIBROSIS
     Dosage: UNK, QD
     Route: 065
     Dates: start: 201009
  3. AMIKACIN [Concomitant]
     Active Substance: AMIKACIN
     Indication: CYSTIC FIBROSIS
     Dosage: UNK, BID
     Route: 065
     Dates: start: 201009
  4. PULMOZYME [Concomitant]
     Active Substance: DORNASE ALFA
     Indication: CYSTIC FIBROSIS
     Dosage: UNK, QD
     Route: 065
     Dates: start: 201009
  5. ALBUTEROL. [Concomitant]
     Active Substance: ALBUTEROL
     Indication: CYSTIC FIBROSIS
     Dosage: UNK, BID
     Route: 065
     Dates: start: 201009
  6. ETHAMBUTOL [Concomitant]
     Active Substance: ETHAMBUTOL HYDROCHLORIDE
     Indication: CYSTIC FIBROSIS
     Dosage: UNK, QD
     Route: 065
     Dates: start: 201009

REACTIONS (4)
  - Sputum increased [Recovered/Resolved]
  - Nasopharyngitis [Recovered/Resolved]
  - Sinus disorder [Recovered/Resolved]
  - Hepatic enzyme increased [Unknown]

NARRATIVE: CASE EVENT DATE: 20150115
